FAERS Safety Report 26129681 (Version 2)
Quarter: 2025Q4

REPORT INFORMATION
  Report Type: Spontaneous
  Country: GB (occurrence: GB)
  Receive Date: 20251208
  Receipt Date: 20251230
  Transmission Date: 20260118
  Serious: Yes (Hospitalization, Other)
  Sender: TEVA
  Company Number: GB-ADVANZ PHARMA-202312011547

PATIENT
  Sex: Female

DRUGS (11)
  1. ESCITALOPRAM [Suspect]
     Active Substance: ESCITALOPRAM OXALATE
     Indication: Anxiety
     Route: 065
  2. IRON [Concomitant]
     Active Substance: IRON
     Indication: Product used for unknown indication
     Route: 065
  3. LANREOTIDE [Suspect]
     Active Substance: LANREOTIDE
     Indication: Neuroendocrine tumour
     Dosage: 120 MG, Q3W (EVERY 21 DAYS) (DEEP SUBCUTANEOUS)
     Route: 058
     Dates: start: 20231115
  4. LANREOTIDE [Suspect]
     Active Substance: LANREOTIDE
     Indication: Neuroendocrine tumour
     Dosage: 120 MG, Q3W (EVERY 21 DAYS) (DEEP SUBCUTANEOUS)
     Route: 058
     Dates: start: 20231025
  5. LANREOTIDE [Suspect]
     Active Substance: LANREOTIDE
     Indication: Neuroendocrine tumour
     Dosage: 120 MG, Q3W (EVERY 21 DAYS) (DEEP SUBCUTANEOUS)
     Route: 058
     Dates: start: 20250717
  6. LANREOTIDE [Suspect]
     Active Substance: LANREOTIDE
     Indication: Neuroendocrine tumour
     Dosage: 120 MG, Q3W (EVERY 21 DAYS) (DEEP SUBCUTANEOUS) (LEFT BUTTOCK)
     Route: 058
     Dates: start: 20251008
  7. LANREOTIDE [Suspect]
     Active Substance: LANREOTIDE
     Indication: Neuroendocrine tumour
     Dosage: 120 MG, Q3W (EVERY 21 DAYS) (DEEP SUBCUTANEOUS)
     Route: 058
     Dates: start: 20231206
  8. LANREOTIDE [Suspect]
     Active Substance: LANREOTIDE
     Indication: Neuroendocrine tumour
     Dosage: 120 MG, Q3W (EVERY 21 DAYS) (DEEP SUBCUTANEOUS)
     Route: 058
     Dates: start: 20250423
  9. LANREOTIDE [Suspect]
     Active Substance: LANREOTIDE
     Indication: Neuroendocrine tumour
     Dosage: 120 MG, Q3W (EVERY 21 DAYS) (DEEP SUBCUTANEOUS)
     Route: 058
  10. LANREOTIDE [Suspect]
     Active Substance: LANREOTIDE
     Indication: Neuroendocrine tumour
     Dosage: 120 MG, Q3W (EVERY 21 DAYS) (DEEP SUBCUTANEOUS RIGHT UPPER OUTER BUTTOCK)
     Route: 058
     Dates: start: 20251210
  11. LANREOTIDE ACETATE [Concomitant]
     Active Substance: LANREOTIDE ACETATE
     Indication: Product used for unknown indication
     Route: 065

REACTIONS (33)
  - Thrombosis [Unknown]
  - COVID-19 [Recovered/Resolved]
  - Pancreatitis [Unknown]
  - Reflux gastritis [Not Recovered/Not Resolved]
  - Diarrhoea [Unknown]
  - Abdominal pain [Not Recovered/Not Resolved]
  - Abdominal pain upper [Unknown]
  - Fatigue [Unknown]
  - Weight decreased [Unknown]
  - Lethargy [Unknown]
  - Loss of personal independence in daily activities [Unknown]
  - Treatment delayed [Unknown]
  - Back pain [Unknown]
  - Product use issue [Unknown]
  - Illness [Unknown]
  - Bone disorder [Unknown]
  - Cataract [Unknown]
  - Urinary tract infection [Unknown]
  - Weight decreased [Unknown]
  - Hot flush [Recovered/Resolved]
  - Feeling hot [Not Recovered/Not Resolved]
  - Lymphadenopathy [Unknown]
  - Fatigue [Recovering/Resolving]
  - Loss of personal independence in daily activities [Unknown]
  - Anxiety [Unknown]
  - Malaise [Not Recovered/Not Resolved]
  - Fatigue [Recovering/Resolving]
  - Dizziness [Not Recovered/Not Resolved]
  - Dizziness [Not Recovered/Not Resolved]
  - Abdominal pain [Unknown]
  - Lethargy [Unknown]
  - Dyspnoea [Not Recovered/Not Resolved]
  - Decreased appetite [Recovered/Resolved]

NARRATIVE: CASE EVENT DATE: 20250101
